FAERS Safety Report 5747337-1 (Version None)
Quarter: 2008Q2

REPORT INFORMATION
  Report Type: 
  Country: None (occurrence: None)
  Receive Date: 20080523
  Receipt Date: 20080513
  Transmission Date: 20081010
  Serious: Yes (Hospitalization)
  Sender: FDA-Public Use
  Company Number: DE-JNJFOC-20080405765

PATIENT
  Sex: Male

DRUGS (2)
  1. CONCERTA [Suspect]
     Indication: ATTENTION DEFICIT/HYPERACTIVITY DISORDER
     Route: 048
  2. ACETAMINOPHEN [Concomitant]

REACTIONS (4)
  - HOSPITALISATION [None]
  - MUSCLE SPASMS [None]
  - MYALGIA [None]
  - TREMOR [None]
